APPROVED DRUG PRODUCT: ERYTHROMYCIN
Active Ingredient: ERYTHROMYCIN
Strength: 2%
Dosage Form/Route: SOLUTION;TOPICAL
Application: A064187 | Product #001
Applicant: FOUGERA PHARMACEUTICALS INC
Approved: Sep 30, 1997 | RLD: No | RS: No | Type: DISCN